FAERS Safety Report 10142339 (Version 2)
Quarter: 2014Q2

REPORT INFORMATION
  Report Type: Spontaneous
  Country: US (occurrence: US)
  Receive Date: 20140430
  Receipt Date: 20140430
  Transmission Date: 20141212
  Serious: Yes (Other)
  Sender: FDA-Public Use
  Company Number: US-ROCHE-1386252

PATIENT
  Sex: Female

DRUGS (2)
  1. RITUXAN [Suspect]
     Indication: PEMPHIGUS
     Route: 065
  2. PREDNISONE [Concomitant]

REACTIONS (4)
  - Muscular weakness [Unknown]
  - Motor dysfunction [Unknown]
  - Sensory loss [Unknown]
  - Muscle rupture [Unknown]
